FAERS Safety Report 10396066 (Version 1)
Quarter: 2014Q3

REPORT INFORMATION
  Report Type: Spontaneous
  Country: US (occurrence: US)
  Receive Date: 20140820
  Receipt Date: 20140820
  Transmission Date: 20150326
  Serious: No
  Sender: FDA-Public Use
  Company Number: US-009507513-1408USA006383

PATIENT
  Sex: Female

DRUGS (1)
  1. PEGINTRON [Suspect]
     Active Substance: PEGINTERFERON ALFA-2B
     Dosage: 0.5 ML, ONCE A WEEK
     Dates: start: 20140524

REACTIONS (4)
  - Product quality issue [Unknown]
  - Anxiety [Unknown]
  - Malaise [Unknown]
  - Drug dose omission [Unknown]

NARRATIVE: CASE EVENT DATE: 201408
